FAERS Safety Report 18544655 (Version 2)
Quarter: 2020Q4

REPORT INFORMATION
  Report Type: Spontaneous
  Country: MX (occurrence: MX)
  Receive Date: 20201125
  Receipt Date: 20201208
  Transmission Date: 20210114
  Serious: Yes (Other)
  Sender: FDA-Public Use
  Company Number: MX-PFIZER INC-2020464804

PATIENT
  Age: 63 Year
  Sex: Female

DRUGS (4)
  1. AZULFIDINA [Concomitant]
     Active Substance: SULFASALAZINE
     Indication: COLITIS ULCERATIVE
     Dosage: UNK (2 IN THE MORNING AND 2 IN THE EVENING)
  2. LYRICA [Suspect]
     Active Substance: PREGABALIN
     Indication: FIBROMYALGIA
     Dosage: UNK
  3. AZULFIDINA [Concomitant]
     Active Substance: SULFASALAZINE
     Indication: ANKYLOSING SPONDYLITIS
  4. AZULFIDINA [Concomitant]
     Active Substance: SULFASALAZINE
     Indication: CROHN^S DISEASE
     Dosage: UNK (1 IN THE MORNING AND 2 IN THE EVENING)

REACTIONS (16)
  - Confusional state [Unknown]
  - Fall [Unknown]
  - Calcium deficiency [Unknown]
  - Muscle spasms [Unknown]
  - Pulmonary embolism [Unknown]
  - Thrombosis [Unknown]
  - Haemorrhage [Unknown]
  - Musculoskeletal disorder [Unknown]
  - Diarrhoea [Unknown]
  - Gait disturbance [Unknown]
  - Abnormal faeces [Unknown]
  - Uveitis [Unknown]
  - Loss of consciousness [Unknown]
  - Pain [Unknown]
  - Abdominal pain [Unknown]
  - Colitis [Unknown]

NARRATIVE: CASE EVENT DATE: 2010
